FAERS Safety Report 5007314-5 (Version None)
Quarter: 2006Q2

REPORT INFORMATION
  Report Type: 
  Country: None (occurrence: None)
  Receive Date: 20060519
  Receipt Date: 20060519
  Transmission Date: 20061013
  Serious: Yes (Other)
  Sender: FDA-Public Use
  Company Number: None

PATIENT
  Sex: Female
  Weight: 56.6996 kg

DRUGS (8)
  1. XOLAIR [Suspect]
     Indication: ASTHMA
     Dosage: 150 MG SUBQ MONTLY
     Route: 058
     Dates: start: 20060308
  2. XOLAIR [Suspect]
     Indication: ASTHMA
     Dosage: 150 MG SUBQ MONTLY
     Route: 058
     Dates: start: 20060427
  3. PROVENTIL [Concomitant]
  4. COMBIVENT [Concomitant]
  5. NEURONTIN [Concomitant]
  6. GAS-X [Concomitant]
  7. SINGULAIR [Concomitant]
  8. NEXIUM [Concomitant]

REACTIONS (2)
  - CHEST PAIN [None]
  - ILL-DEFINED DISORDER [None]
